FAERS Safety Report 18210593 (Version 4)
Quarter: 2020Q4

REPORT INFORMATION
  Report Type: Report from Study
  Country: DE (occurrence: DE)
  Receive Date: 20200829
  Receipt Date: 20201216
  Transmission Date: 20210113
  Serious: Yes (Hospitalization)
  Sender: FDA-Public Use
  Company Number: DE-CELLTRION INC.-2020DE025665

PATIENT

DRUGS (5)
  1. TRUXIMA [Suspect]
     Active Substance: RITUXIMAB-ABBS
     Indication: MARGINAL ZONE LYMPHOMA
     Dosage: 375 MG/M2, EVERY 56 DAYS
     Route: 042
  2. TRUXIMA [Suspect]
     Active Substance: RITUXIMAB-ABBS
     Dosage: 375 MG/M2, EVERY 28 DAYS
     Route: 042
     Dates: start: 20191218
  3. COPANLISIB. [Suspect]
     Active Substance: COPANLISIB
     Dosage: 27 MG EVERY 14 DAYS
     Route: 042
     Dates: start: 20191218, end: 20200721
  4. COPANLISIB. [Suspect]
     Active Substance: COPANLISIB
     Indication: MARGINAL ZONE LYMPHOMA
     Dosage: 60 MG EVERY 14 DAYS
     Route: 042
     Dates: start: 20191218, end: 20200721
  5. COPANLISIB. [Suspect]
     Active Substance: COPANLISIB
     Dosage: DOSE REDUCTION TO 45 MG
     Route: 042
     Dates: start: 20200804, end: 20200804

REACTIONS (2)
  - Herpes zoster [Recovered/Resolved]
  - Off label use [Unknown]

NARRATIVE: CASE EVENT DATE: 20200814
